FAERS Safety Report 17851768 (Version 1)
Quarter: 2020Q2

REPORT INFORMATION
  Report Type: Report from Study
  Country: CA (occurrence: CA)
  Receive Date: 20200602
  Receipt Date: 20200602
  Transmission Date: 20200714
  Serious: Yes (Other)
  Sender: FDA-Public Use
  Company Number: CA-ROCHE-2500216

PATIENT
  Age: 67 Year
  Sex: Female

DRUGS (13)
  1. ACTEMRA [Suspect]
     Active Substance: TOCILIZUMAB
     Indication: STILL^S DISEASE
     Dosage: ADVISED BY PATIENT HAS NOT HAD INJECTION SINCE END OF?APR-2020; LAST KNOWN INJECTION 10-JAN-2020 IN
     Route: 058
     Dates: start: 20191107, end: 2020
  2. CORTEF [Concomitant]
     Active Substance: HYDROCORTISONE
     Route: 048
  3. ROCALTROL [Concomitant]
     Active Substance: CALCITRIOL
  4. PLAQUENIL [Concomitant]
     Active Substance: HYDROXYCHLOROQUINE SULFATE
     Route: 065
     Dates: start: 2016
  5. VITAMIN C [Concomitant]
     Active Substance: ASCORBIC ACID
     Dosage: BIOTIN/FOLIC ACID/VITAMIN B-C
     Route: 048
  6. D-TABS [Concomitant]
     Active Substance: CHOLECALCIFEROL
     Route: 065
  7. ALLOPURINOL. [Concomitant]
     Active Substance: ALLOPURINOL
  8. AMLODIPINE [Concomitant]
     Active Substance: AMLODIPINE BESYLATE
     Dosage: HALF A 5MG TABLET
     Route: 048
  9. IRBESARTAN. [Concomitant]
     Active Substance: IRBESARTAN
     Route: 048
  10. CLONAZEPAM. [Concomitant]
     Active Substance: CLONAZEPAM
     Dosage: AS REQUIRED
     Route: 048
  11. ARANESP [Concomitant]
     Active Substance: DARBEPOETIN ALFA
     Route: 058
  12. ANUSOL PLUS [PRAMOCAINE HYDROCHLORIDE;ZINC SULFATE] [Concomitant]
     Dosage: ONE SUPPOSITORY TWICE DAILY AS NEEDED
     Route: 054
  13. ATENOLOL. [Concomitant]
     Active Substance: ATENOLOL
     Route: 048

REACTIONS (7)
  - Dry mouth [Recovering/Resolving]
  - Fatigue [Recovering/Resolving]
  - Intentional product use issue [Unknown]
  - Off label use [Unknown]
  - Progressive multifocal leukoencephalopathy [Unknown]
  - Confusional state [Unknown]
  - Diarrhoea [Recovered/Resolved]

NARRATIVE: CASE EVENT DATE: 20191123
